FAERS Safety Report 5839748-0 (Version None)
Quarter: 2008Q3

REPORT INFORMATION
  Report Type: 
  Country: None (occurrence: None)
  Receive Date: 20080811
  Receipt Date: 20080805
  Transmission Date: 20090109
  Serious: Yes (Hospitalization)
  Sender: FDA-Public Use
  Company Number: US-BRISTOL-MYERS SQUIBB COMPANY-14289573

PATIENT
  Age: 53 Year
  Sex: Female
  Weight: 77 kg

DRUGS (18)
  1. CYCLOPHOSPHAMIDE [Suspect]
     Indication: DIFFUSE LARGE B-CELL LYMPHOMA
     Dosage: ADMINISTERED ON 29-FEB-2008 AT A DOSE OF 1134 MG AND IS ONGOING
     Route: 042
     Dates: start: 20080212, end: 20080229
  2. VINCRISTINE SULFATE [Suspect]
     Indication: DIFFUSE LARGE B-CELL LYMPHOMA
     Route: 042
     Dates: start: 20080212
  3. DOXORUBICIN HCL [Suspect]
     Indication: DIFFUSE LARGE B-CELL LYMPHOMA
     Dosage: TAKEN ON 29FEB2008 AT A DOSE OF 76 MG AND IS ONGOING
     Route: 042
     Dates: start: 20080212, end: 20080229
  4. RITUXIMAB [Suspect]
     Indication: DIFFUSE LARGE B-CELL LYMPHOMA
     Route: 042
     Dates: start: 20080212
  5. PREDNISONE TAB [Suspect]
     Indication: DIFFUSE LARGE B-CELL LYMPHOMA
     Route: 048
     Dates: start: 20080212
  6. ROMIPLOSTIM [Concomitant]
     Indication: THROMBOCYTOPENIA
     Dates: start: 20080213
  7. NEULASTA [Concomitant]
     Indication: CHEMOTHERAPY
     Dosage: FORMULATION: PREFILLED SYRINGE
     Route: 058
     Dates: start: 20080213
  8. BECLOMETHASONE DIPROPIONATE [Concomitant]
     Route: 061
  9. MUPIROCIN [Concomitant]
     Route: 061
  10. SULFADIAZINE [Concomitant]
     Dosage: SULFADIAZINE SILVER
     Route: 061
  11. HYDROXYCHLOROQUINE SULFATE [Concomitant]
  12. DEXTROPROPOXYPHENE HCL [Concomitant]
     Route: 048
     Dates: start: 20080212
  13. POTASSIUM CHLORIDE [Concomitant]
     Route: 065
     Dates: start: 20071205
  14. FAMOTIDINE [Concomitant]
     Route: 048
     Dates: start: 20071205
  15. SENOKOT [Concomitant]
     Route: 048
     Dates: start: 20071205
  16. ATIVAN [Concomitant]
     Indication: NAUSEA
  17. BENADRYL [Concomitant]
     Indication: NAUSEA
  18. HALDOL [Concomitant]
     Indication: NAUSEA

REACTIONS (3)
  - FEBRILE NEUTROPENIA [None]
  - MUCOSAL INFLAMMATION [None]
  - UPPER RESPIRATORY TRACT INFECTION [None]
